FAERS Safety Report 19351574 (Version 9)
Quarter: 2021Q4

REPORT INFORMATION
  Report Type: Report from Study
  Country: FR (occurrence: None)
  Receive Date: 20210531
  Receipt Date: 20211221
  Transmission Date: 20220303
  Serious: Yes (Life-Threatening, Hospitalization)
  Sender: FDA-Public Use
  Company Number: FR-ROCHE-2838668

PATIENT
  Age: 81 Year
  Sex: Male
  Weight: 84 kg

DRUGS (38)
  1. MOSUNETUZUMAB [Suspect]
     Active Substance: MOSUNETUZUMAB
     Indication: Non-Hodgkin^s lymphoma
     Dosage: DATE OF MOST RECENT DOSE OF MOSUNETUZUMAB (30 MG) PRIOR TO SAE: 18/MAY/2021
     Route: 042
     Dates: start: 20210128
  2. POLATUZUMAB VEDOTIN [Suspect]
     Active Substance: POLATUZUMAB VEDOTIN
     Indication: Non-Hodgkin^s lymphoma
     Dosage: DATE OF MOST RECENT DOSE OF POLATUZUMAB VEDOTIN (148 MG) PRIOR TO SAE: 18/MAY/2021
     Route: 042
     Dates: start: 20210128
  3. TOCILIZUMAB [Suspect]
     Active Substance: TOCILIZUMAB
     Indication: Non-Hodgkin^s lymphoma
     Route: 042
     Dates: start: 20210128
  4. CYCLOPHOSPHAMIDE [Suspect]
     Active Substance: CYCLOPHOSPHAMIDE
     Indication: Non-Hodgkin^s lymphoma
     Dosage: DATE OF MOST RECENT DOSE OF CYCLOPHOSPHAMIDE (1480 MG) PRIOR TO SAE: 18/MAY/2021
     Route: 042
     Dates: start: 20210128
  5. DOXORUBICIN [Suspect]
     Active Substance: DOXORUBICIN
     Indication: B-cell lymphoma
     Dosage: DATE OF MOST RECENT DOSE OF DOXORUBICIN (98 MG) PRIOR TO SAE: 18/MAY/2021
     Route: 048
     Dates: start: 20210128
  6. PREDNISONE [Suspect]
     Active Substance: PREDNISONE
     Indication: B-cell lymphoma
     Dosage: DATE OF MOST RECENT DOSE OF PREDNISONE (100 MG) PRIOR TO SAE: 22/MAY/2021
     Route: 048
     Dates: start: 20210128
  7. TAHOR [Concomitant]
     Active Substance: ATORVASTATIN CALCIUM
     Route: 048
     Dates: start: 2006
  8. EZETIMIBE [Concomitant]
     Active Substance: EZETIMIBE
     Route: 048
  9. INNOHEP [Concomitant]
     Active Substance: TINZAPARIN SODIUM
     Route: 058
     Dates: start: 20210129
  10. VALACYCLOVIR HYDROCHLORIDE [Concomitant]
     Active Substance: VALACYCLOVIR HYDROCHLORIDE
     Route: 048
     Dates: start: 20210129
  11. BACTRIM [Concomitant]
     Active Substance: SULFAMETHOXAZOLE\TRIMETHOPRIM
     Route: 048
     Dates: start: 20210201
  12. PANTOPRAZOLE [Concomitant]
     Active Substance: PANTOPRAZOLE
     Route: 048
     Dates: start: 20210129
  13. ALFUZOSIN [Concomitant]
     Active Substance: ALFUZOSIN
     Route: 048
     Dates: start: 20210331
  14. HERBALS\SAW PALMETTO [Concomitant]
     Active Substance: HERBALS\SAW PALMETTO
     Route: 048
     Dates: start: 20210331
  15. ACETAMINOPHEN [Concomitant]
     Active Substance: ACETAMINOPHEN
     Route: 042
     Dates: start: 20210518, end: 20210518
  16. POLARAMINE [Concomitant]
     Active Substance: DEXCHLORPHENIRAMINE MALEATE
     Route: 042
     Dates: start: 20210518, end: 20210518
  17. FILGRASTIM [Concomitant]
     Active Substance: FILGRASTIM
     Dosage: 30 OTHER
     Route: 058
     Dates: start: 20210523, end: 20210602
  18. APREPITANT [Concomitant]
     Active Substance: APREPITANT
     Route: 048
     Dates: start: 20210519, end: 20210520
  19. APREPITANT [Concomitant]
     Active Substance: APREPITANT
     Route: 048
     Dates: start: 20210611, end: 20210612
  20. ONDANSETRON [Concomitant]
     Active Substance: ONDANSETRON
     Route: 048
     Dates: start: 20210519, end: 20210520
  21. DITROPAN [Concomitant]
     Active Substance: OXYBUTYNIN CHLORIDE
     Route: 048
     Dates: start: 20210518
  22. ALPRAZOLAM [Concomitant]
     Active Substance: ALPRAZOLAM
     Route: 048
     Dates: start: 20210518
  23. TAMSULOSIN HYDROCHLORIDE [Concomitant]
     Active Substance: TAMSULOSIN HYDROCHLORIDE
     Route: 048
     Dates: start: 20210408
  24. CEFTRIAXONE [Concomitant]
     Active Substance: CEFTRIAXONE
     Route: 042
     Dates: start: 20210429, end: 20210512
  25. COVID-19 VACCINE NOS [Concomitant]
     Active Substance: COVID-19 VACCINE NOS
     Route: 058
     Dates: start: 20210428, end: 20210428
  26. COVID-19 VACCINE NOS [Concomitant]
     Active Substance: COVID-19 VACCINE NOS
     Route: 058
     Dates: start: 20210518, end: 20210518
  27. CEFTAZIDIME [Concomitant]
     Active Substance: CEFTAZIDIME
     Route: 042
     Dates: start: 20210528, end: 20210609
  28. VANCOMYCIN [Concomitant]
     Active Substance: VANCOMYCIN
     Route: 048
     Dates: start: 20210529, end: 20210608
  29. INDAPAMIDE\PERINDOPRIL [Concomitant]
     Active Substance: INDAPAMIDE\PERINDOPRIL
  30. ACETAMINOPHEN [Concomitant]
     Active Substance: ACETAMINOPHEN
  31. POLARAMINE [Concomitant]
     Active Substance: DEXCHLORPHENIRAMINE MALEATE
  32. FUROSEMIDE [Concomitant]
     Active Substance: FUROSEMIDE
     Route: 042
     Dates: start: 20210622, end: 20210622
  33. RISORDAN (FRANCE) [Concomitant]
     Route: 042
     Dates: start: 20210622, end: 20210622
  34. MORPHINE [Concomitant]
     Active Substance: MORPHINE
     Route: 042
     Dates: start: 20210622, end: 20210622
  35. MORPHINE [Concomitant]
     Active Substance: MORPHINE
     Route: 042
     Dates: start: 20210625, end: 20210625
  36. PIPERACILLIN SODIUM\TAZOBACTAM SODIUM [Concomitant]
     Active Substance: PIPERACILLIN SODIUM\TAZOBACTAM SODIUM
     Route: 042
     Dates: start: 20210622, end: 20210706
  37. POTASSIUM [Concomitant]
     Active Substance: POTASSIUM
     Route: 042
     Dates: start: 20210622, end: 20210622
  38. POTASSIUM CHLORIDE [Concomitant]
     Active Substance: POTASSIUM CHLORIDE
     Route: 048
     Dates: start: 20210622, end: 20210622

REACTIONS (4)
  - Febrile neutropenia [Recovered/Resolved]
  - Vascular device infection [Recovered/Resolved]
  - Clostridium difficile infection [Recovered/Resolved]
  - Febrile neutropenia [Recovered/Resolved]

NARRATIVE: CASE EVENT DATE: 20210525
